FAERS Safety Report 8738657 (Version 10)
Quarter: 2013Q4

REPORT INFORMATION
  Report Type: Report from Study
  Country: JP (occurrence: JP)
  Receive Date: 20120823
  Receipt Date: 20131203
  Transmission Date: 20140711
  Serious: Yes (Hospitalization)
  Sender: FDA-Public Use
  Company Number: JP-VERTEX PHARMACEUTICAL INC.-2012-019743

PATIENT
  Age: 53 Year
  Sex: Female

DRUGS (19)
  1. VX-950 (TELAPREVIR) [Suspect]
     Indication: CHRONIC HEPATITIS C
     Dosage: 1500 MG, QD
     Route: 048
     Dates: start: 20120621, end: 20120627
  2. VX-950 (TELAPREVIR) [Suspect]
     Dosage: 2250 MG, QD
     Route: 048
     Dates: start: 20120628, end: 20120806
  3. REBETOL [Suspect]
     Indication: CHRONIC HEPATITIS C
     Dosage: 600 MG, QD
     Route: 048
     Dates: start: 20120621, end: 20120704
  4. REBETOL [Suspect]
     Dosage: 400 MG, QD
     Route: 048
     Dates: start: 20120705, end: 20120712
  5. REBETOL [Suspect]
     Dosage: 200 MG, QD
     Route: 048
     Dates: start: 20120713, end: 20120806
  6. PEGINTRON [Suspect]
     Indication: CHRONIC HEPATITIS C
     Dosage: 1.5 ?G/KG, QW
     Route: 058
     Dates: start: 20120621, end: 20120803
  7. LOXONIN [Concomitant]
     Dosage: 60 MG, QD/PRN
     Route: 048
     Dates: start: 20120621, end: 20120806
  8. MUCOSTA [Concomitant]
     Dosage: 100 MG, QD/PRN
     Route: 048
     Dates: start: 20120621, end: 20120806
  9. LOCOID [Concomitant]
     Dosage: UNK, PRN
     Route: 061
     Dates: start: 20120628, end: 20120703
  10. FLOMOX [Concomitant]
     Dosage: 300 MG, QD
     Route: 048
     Dates: start: 20120716, end: 20120719
  11. BIO THREE [Concomitant]
     Dosage: 3 DF, QD
     Route: 048
     Dates: start: 20120727, end: 20120806
  12. FEBURIC [Concomitant]
     Dosage: 10 MG, QD
     Route: 048
     Dates: start: 20120621, end: 20120726
  13. FEBURIC [Concomitant]
     Dosage: 20 MG, QD
     Route: 048
     Dates: start: 20120727, end: 20120806
  14. PARIET [Concomitant]
     Dosage: 10 MG, QD
     Route: 048
     Dates: start: 20120809, end: 20120926
  15. FOSAMAC [Concomitant]
     Dosage: 35 MG, QD
     Route: 048
     Dates: start: 20120809, end: 20120920
  16. VASOLAN [Concomitant]
     Dosage: 40 MG, QD PRN
     Route: 048
     Dates: start: 20120810, end: 20120810
  17. CRAVIT [Concomitant]
     Dosage: 500 MG, QD
     Route: 048
     Dates: start: 20120811, end: 20120813
  18. LASIX [Concomitant]
     Dosage: 20 MG, QD
     Route: 048
     Dates: start: 20120821, end: 20120825
  19. SLOW-K [Concomitant]
     Dosage: 2400 MG, QD
     Route: 048
     Dates: start: 20120903, end: 20120910

REACTIONS (1)
  - Drug eruption [Recovered/Resolved]
